FAERS Safety Report 10167488 (Version 2)
Quarter: 2014Q2

REPORT INFORMATION
  Report Type: Spontaneous
  Country: US (occurrence: US)
  Receive Date: 20140512
  Receipt Date: 20140512
  Transmission Date: 20141212
  Serious: Yes (Other)
  Sender: FDA-Public Use
  Company Number: US-CELGENEUS-163-POMAL-14040958

PATIENT
  Age: 64 Year
  Sex: Female

DRUGS (2)
  1. POMALYST [Suspect]
     Indication: PLASMA CELL MYELOMA
     Dosage: 4 MILLIGRAM
     Route: 048
     Dates: start: 20140325
  2. POMALYST [Suspect]
     Dosage: 4 MILLIGRAM
     Route: 048
     Dates: start: 20140401, end: 20140404

REACTIONS (6)
  - Hypersensitivity [Not Recovered/Not Resolved]
  - Respiratory tract congestion [Unknown]
  - Lip swelling [Unknown]
  - Rash generalised [Not Recovered/Not Resolved]
  - Dyspnoea [Unknown]
  - Cough [Unknown]
